FAERS Safety Report 15176359 (Version 1)
Quarter: 2018Q3

REPORT INFORMATION
  Report Type: Report from Study
  Country: US (occurrence: US)
  Receive Date: 20180720
  Receipt Date: 20180720
  Transmission Date: 20181010
  Serious: No
  Sender: FDA-Public Use
  Company Number: US-AMGEN-USASL2018073832

PATIENT
  Age: 65 Year
  Sex: Female

DRUGS (4)
  1. REPATHA [Suspect]
     Active Substance: EVOLOCUMAB
     Indication: ESSENTIAL HYPERTENSION
  2. REPATHA [Suspect]
     Active Substance: EVOLOCUMAB
     Indication: SPINAL OSTEOARTHRITIS
  3. REPATHA [Suspect]
     Active Substance: EVOLOCUMAB
     Indication: OSTEOARTHRITIS
  4. REPATHA [Suspect]
     Active Substance: EVOLOCUMAB
     Indication: HYPERLIPIDAEMIA
     Dosage: 140 MG, Q2WK
     Route: 065

REACTIONS (7)
  - Pain in extremity [Unknown]
  - Back injury [Unknown]
  - Adverse event [Recovered/Resolved]
  - Fall [Unknown]
  - Limb injury [Unknown]
  - Sinus congestion [Recovered/Resolved]
  - Back pain [Unknown]
